FAERS Safety Report 6242368-X (Version None)
Quarter: 2009Q2

REPORT INFORMATION
  Report Type: 
  Country: None (occurrence: None)
  Receive Date: 20090622
  Receipt Date: 20090622
  Transmission Date: 20091009
  Serious: No
  Sender: FDA-Public Use
  Company Number: None

PATIENT
  Age: 55 Year
  Sex: Female
  Weight: 63.5036 kg

DRUGS (1)
  1. LAMOTRIGINE [Suspect]
     Indication: EPILEPSY
     Dosage: 300 MG BID PO
     Route: 048
     Dates: start: 20090301, end: 20090601

REACTIONS (6)
  - ATAXIA [None]
  - DIZZINESS [None]
  - DRUG LEVEL DECREASED [None]
  - DRUG LEVEL INCREASED [None]
  - PRODUCT SUBSTITUTION ISSUE [None]
  - VISION BLURRED [None]
